FAERS Safety Report 24304974 (Version 1)
Quarter: 2024Q3

REPORT INFORMATION
  Report Type: Spontaneous
  Country: US (occurrence: US)
  Receive Date: 20240911
  Receipt Date: 20240911
  Transmission Date: 20241017
  Serious: Yes (Hospitalization)
  Sender: CHEPLAPHARM
  Company Number: US-ROCHE-10000072481

PATIENT
  Age: 63 Year
  Sex: Male
  Weight: 112.19 kg

DRUGS (2)
  1. CAPECITABINE [Suspect]
     Active Substance: CAPECITABINE
     Indication: Colorectal cancer metastatic
  2. SORAFENIB [Suspect]
     Active Substance: SORAFENIB
     Indication: Colorectal cancer metastatic

REACTIONS (7)
  - Haematoma infection [Unknown]
  - Splenic infarction [Unknown]
  - Intestinal perforation [Unknown]
  - Paraspinal abscess [Unknown]
  - Hepatic cirrhosis [Unknown]
  - Acute kidney injury [Unknown]
  - Abdominal pain [Unknown]

NARRATIVE: CASE EVENT DATE: 20140409
